FAERS Safety Report 6421828-2 (Version None)
Quarter: 2009Q4

REPORT INFORMATION
  Report Type: 
  Country: None (occurrence: None)
  Receive Date: 20091030
  Receipt Date: 20091028
  Transmission Date: 20100525
  Serious: Yes (Life-Threatening)
  Sender: FDA-Public Use
  Company Number: B0600471A

PATIENT
  Sex: Male
  Weight: 76.8 kg

DRUGS (5)
  1. RELENZA [Suspect]
     Dates: start: 20091019, end: 20091025
  2. FUROSEMIDE [Suspect]
  3. LASIX [Concomitant]
     Dosage: 40MG TWICE PER DAY
     Route: 042
     Dates: start: 20091020, end: 20091022
  4. HYDROCORTISONE [Concomitant]
     Indication: SEPSIS
     Dosage: 50MG FOUR TIMES PER DAY
     Route: 042
     Dates: start: 20091019
  5. MENOPREM [Concomitant]
     Indication: SEPSIS
     Dosage: 1G THREE TIMES PER DAY
     Route: 042
     Dates: start: 20091018

REACTIONS (1)
  - HYPERNATRAEMIA [None]
